FAERS Safety Report 6680817-3 (Version None)
Quarter: 2010Q2

REPORT INFORMATION
  Report Type: 
  Country: None (occurrence: None)
  Receive Date: 20100414
  Receipt Date: 20100412
  Transmission Date: 20101027
  Serious: Yes (Death)
  Sender: FDA-Public Use
  Company Number: US-ASTRAZENECA-2009UW10051

PATIENT
  Sex: Male

DRUGS (8)
  1. SEROQUEL [Suspect]
     Route: 048
     Dates: start: 20000810
  2. NEURONTIN [Concomitant]
     Dates: start: 20000627
  3. RISPERDAL [Concomitant]
     Dates: start: 20000627
  4. METFORMIN HCL [Concomitant]
     Dates: start: 20000627
  5. LOTRISONE [Concomitant]
     Dates: start: 20000627
  6. EFFEXOR [Concomitant]
     Dates: start: 20000810
  7. TYLENOL-500 [Concomitant]
     Dates: start: 20010905
  8. ABILIFY [Concomitant]
     Dates: start: 20030617

REACTIONS (3)
  - DIABETES MELLITUS [None]
  - DIABETIC KETOACIDOSIS [None]
  - PULMONARY EMBOLISM [None]
